FAERS Safety Report 7984535-0 (Version None)
Quarter: 2011Q4

REPORT INFORMATION
  Report Type: 
  Country: None (occurrence: None)
  Receive Date: 20111216
  Receipt Date: 20111208
  Transmission Date: 20120403
  Serious: Yes (Hospitalization)
  Sender: FDA-Public Use
  Company Number: JP-ASTELLAS-2011JP009216

PATIENT
  Age: 23 Year
  Sex: Female

DRUGS (3)
  1. PROGRAF [Suspect]
     Dosage: 7 MG, UNKNOWN/D
     Route: 048
     Dates: end: 20111208
  2. PREDNISOLONE [Concomitant]
     Dosage: UNK
     Route: 048
  3. PROGRAF [Suspect]
     Indication: COLITIS ULCERATIVE
     Dosage: 8 MG, UNKNOWN/D
     Route: 048
     Dates: start: 20111120

REACTIONS (1)
  - POST TRANSPLANT DISTAL LIMB SYNDROME [None]
